FAERS Safety Report 8503755-X (Version None)
Quarter: 2012Q3

REPORT INFORMATION
  Report Type: 
  Country: None (occurrence: None)
  Receive Date: 20120711
  Receipt Date: 20120709
  Transmission Date: 20120928
  Serious: Yes (Other)
  Sender: FDA-Public Use
  Company Number: CA-ABBOTT-12P-028-0943629-00

PATIENT
  Sex: Female
  Weight: 95.3 kg

DRUGS (1)
  1. HUMIRA [Suspect]
     Indication: CHRONIC RECURRENT MULTIFOCAL OSTEOMYELITIS
     Route: 058
     Dates: start: 20111115, end: 20120206

REACTIONS (2)
  - NEOPLASM MALIGNANT [None]
  - EWING'S SARCOMA [None]
